FAERS Safety Report 8320585-2 (Version None)
Quarter: 2012Q2

REPORT INFORMATION
  Report Type: 
  Country: None (occurrence: None)
  Receive Date: 20120430
  Receipt Date: 20120419
  Transmission Date: 20120825
  Serious: Yes (Other)
  Sender: FDA-Public Use
  Company Number: US-PFIZER INC-2012091845

PATIENT
  Sex: Male
  Weight: 89.342 kg

DRUGS (13)
  1. WELLBUTRIN XL [Concomitant]
     Indication: DEPRESSION
     Dosage: 300 MG, QAM
     Route: 048
     Dates: start: 20111104
  2. VALIUM [Concomitant]
     Indication: ANXIETY
     Dosage: 5 MG, AS NEEDED
     Route: 048
     Dates: start: 20100330
  3. GAS-X [Concomitant]
     Indication: ABDOMINAL DISTENSION
     Dosage: 166 MG, AS NEEDED
     Route: 048
     Dates: start: 20120319, end: 20120330
  4. NEXIUM [Concomitant]
     Indication: GASTROINTESTINAL PAIN
     Dosage: 40 MG, 2X/DAY
     Route: 048
     Dates: start: 20111201, end: 20120330
  5. MILK OF MAGNESIA TAB [Concomitant]
     Indication: CONSTIPATION
     Dosage: 30 ML, AS NEEDED
     Route: 048
     Dates: start: 20100314
  6. MORPHINE [Concomitant]
     Indication: GASTROINTESTINAL PAIN
     Dosage: 15 MG, AS NEEDED
     Route: 048
     Dates: start: 20110922
  7. CRIZOTINIB [Suspect]
     Indication: NON-SMALL CELL LUNG CANCER
     Dosage: 250 MG, 2X/DAY
     Route: 048
     Dates: start: 20110829, end: 20110919
  8. SENNA [Concomitant]
     Indication: CONSTIPATION
     Dosage: 1 TAB PRN
     Route: 048
     Dates: start: 20110912
  9. PEPCID [Concomitant]
     Indication: GASTROINTESTINAL PAIN
     Dosage: 40 MG, 2X/DAY
     Route: 048
     Dates: start: 20120330, end: 20120404
  10. DULCOLAX [Concomitant]
     Indication: CONSTIPATION
     Dosage: 10 MG, AS NEEDED, PR
     Dates: start: 20100314
  11. CRIZOTINIB [Suspect]
     Dosage: 200 MG, 2X/DAY
     Route: 048
     Dates: start: 20111010, end: 20120416
  12. AMBIEN [Concomitant]
     Indication: INSOMNIA
     Dosage: 10 MG, HS PRN
     Route: 048
     Dates: start: 20111201
  13. METRONIDAZOLE [Concomitant]
     Indication: GASTROINTESTINAL PAIN
     Dosage: 500 MG, 3X/DAY
     Route: 048
     Dates: start: 20120319, end: 20120329

REACTIONS (1)
  - GASTRIC ULCER [None]
